FAERS Safety Report 5247677-9 (Version None)
Quarter: 2007Q1

REPORT INFORMATION
  Report Type: 
  Country: None (occurrence: None)
  Receive Date: 20070227
  Receipt Date: 20070219
  Transmission Date: 20070707
  Serious: Yes (Hospitalization)
  Sender: FDA-Public Use
  Company Number: CZ-AVENTIS-200711059GDDC

PATIENT
  Age: 65 Year
  Sex: Female

DRUGS (7)
  1. ARAVA [Suspect]
     Indication: RHEUMATOID ARTHRITIS
     Route: 048
  2. METHOTREXATE [Suspect]
     Indication: RHEUMATOID ARTHRITIS
     Route: 048
  3. HARTIL [Concomitant]
  4. MODURETIC 5-50 [Concomitant]
     Dosage: DOSE: 0.5 TABLET
  5. BETALOC [Concomitant]
     Dosage: DOSE: 0.5 TABLETS
  6. ALENDROS [Concomitant]
     Dosage: DOSE: 1 DOSE
  7. IRON PREPARATIONS [Concomitant]

REACTIONS (10)
  - ANAEMIA [None]
  - ERYSIPELAS [None]
  - FEBRILE NEUTROPENIA [None]
  - HYPOALBUMINAEMIA [None]
  - HYPOKALAEMIA [None]
  - INFECTED SKIN ULCER [None]
  - LEUKOPENIA [None]
  - PANCYTOPENIA [None]
  - PYREXIA [None]
  - THROMBOCYTOPENIA [None]
